FAERS Safety Report 4317105-6 (Version None)
Quarter: 2004Q1

REPORT INFORMATION
  Report Type: 
  Country: None (occurrence: None)
  Receive Date: 20040312
  Receipt Date: 20040303
  Transmission Date: 20041129
  Serious: Yes (Hospitalization)
  Sender: FDA-Public Use
  Company Number: 2004202104CA

PATIENT
  Age: 29 Year
  Sex: Female
  Weight: 90.5 kg

DRUGS (1)
  1. DALTEPARIN SODIUM [Suspect]
     Indication: FACTOR V LEIDEN MUTATION
     Dosage: 5000 IU, BID, SUBCUTANEOUS
     Route: 058
     Dates: start: 20031101

REACTIONS (6)
  - ABDOMINAL PAIN [None]
  - CAESAREAN SECTION [None]
  - COMPLICATIONS OF MATERNAL EXPOSURE TO THERAPEUTIC DRUGS [None]
  - PLACENTAL DISORDER [None]
  - PREMATURE SEPARATION OF PLACENTA [None]
  - VAGINAL HAEMORRHAGE [None]
